FAERS Safety Report 6358624-0 (Version None)
Quarter: 2009Q3

REPORT INFORMATION
  Report Type: 
  Country: None (occurrence: None)
  Receive Date: 20090914
  Receipt Date: 20090903
  Transmission Date: 20100115
  Serious: Yes (Other)
  Sender: FDA-Public Use
  Company Number: ADE# 09-112

PATIENT
  Sex: Male

DRUGS (3)
  1. CLOZAPINE [Suspect]
     Dosage: 500MG DAILY
     Dates: start: 20070101
  2. INTERFERON [Suspect]
     Indication: HEPATITIS C
     Dates: start: 20090814, end: 20090903
  3. INTERFERON [Concomitant]

REACTIONS (1)
  - WHITE BLOOD CELL COUNT DECREASED [None]
